FAERS Safety Report 8798938 (Version 1)
Quarter: 2012Q4

REPORT INFORMATION
  Report Type: Spontaneous
  Country: US (occurrence: None)
  Receive Date: 20120918
  Receipt Date: 20120918
  Transmission Date: 20130627
  Serious: Yes (Hospitalization)
  Sender: FDA-Public Use
  Company Number: None

PATIENT
  Age: 64 Year
  Sex: Male
  Weight: 71.6 kg

DRUGS (4)
  1. TARCEVA [Suspect]
     Indication: CHOLANGIOCARCINOMA
     Dosage: 100 mg daily po
     Route: 048
     Dates: start: 20111018, end: 29120911
  2. TARCEVA [Suspect]
     Indication: METASTASIS
     Dosage: 100 mg daily po
     Route: 048
     Dates: start: 20111018, end: 29120911
  3. GEMZAR [Suspect]
     Indication: CHOLANGIOCARCINOMA
     Dosage: 1350 mg every 2 weeks IV
     Route: 042
     Dates: start: 20111018, end: 20120911
  4. GEMZAR [Suspect]
     Indication: METASTASIS
     Dosage: 1350 mg every 2 weeks IV
     Route: 042
     Dates: start: 20111018, end: 20120911

REACTIONS (7)
  - Hernia pain [None]
  - Condition aggravated [None]
  - Hyperkalaemia [None]
  - Gastrointestinal haemorrhage [None]
  - Pyrexia [None]
  - Chills [None]
  - Anaemia [None]
